FAERS Safety Report 16732230 (Version 1)
Quarter: 2019Q3

REPORT INFORMATION
  Report Type: Spontaneous
  Country: CL (occurrence: CL)
  Receive Date: 20190822
  Receipt Date: 20190822
  Transmission Date: 20191005
  Serious: Yes (Other)
  Sender: FDA-Public Use
  Company Number: CL-009507513-1907CHL012202

PATIENT
  Sex: Female

DRUGS (1)
  1. NUVARING [Suspect]
     Active Substance: ETHINYL ESTRADIOL\ETONOGESTREL
     Indication: CONTRACEPTION
     Dosage: UNK
     Route: 067
     Dates: end: 2017

REACTIONS (12)
  - Menstruation irregular [Unknown]
  - Depression [Unknown]
  - Cholecystectomy [Unknown]
  - Mood altered [Unknown]
  - Therapeutic response unexpected [Unknown]
  - Premature menopause [Unknown]
  - Infertility female [Unknown]
  - Amenorrhoea [Unknown]
  - Sleep deficit [Unknown]
  - Pancreatitis [Unknown]
  - Stress [Unknown]
  - Menstruation delayed [Unknown]

NARRATIVE: CASE EVENT DATE: 201812
